FAERS Safety Report 24712592 (Version 2)
Quarter: 2025Q1

REPORT INFORMATION
  Report Type: Spontaneous
  Country: JP (occurrence: JP)
  Receive Date: 20241209
  Receipt Date: 20250321
  Transmission Date: 20250408
  Serious: Yes (Death, Disabling, Other)
  Sender: ALEXION PHARMACEUTICALS
  Company Number: JP-ASTRAZENECA-240136802_064320_P_1

PATIENT
  Age: 81 Year
  Weight: 53 kg

DRUGS (14)
  1. ANDEXXA [Suspect]
     Active Substance: ANDEXANET ALFA
     Indication: Subdural haematoma
  2. EDOXABAN [Concomitant]
     Active Substance: EDOXABAN
     Indication: Atrial fibrillation
     Dosage: AFTER BREAKFAST
  3. GASLON [Concomitant]
     Active Substance: IRSOGLADINE MALEATE
     Dosage: AFTER BREAKFAST
  4. TADALAFIL [Concomitant]
     Active Substance: TADALAFIL
     Dosage: AFTER BREAKFAST
  5. DUTASTERIDE [Concomitant]
     Active Substance: DUTASTERIDE
     Dosage: AFTER BREAKFAST
  6. TORSEMIDE [Concomitant]
     Active Substance: TORSEMIDE
     Dosage: AFTER BREAKFAST
  7. ALLOPURINOL [Concomitant]
     Active Substance: ALLOPURINOL
     Dosage: AFTER DINNER
  8. LANSOPRAZOLE [Concomitant]
     Active Substance: LANSOPRAZOLE
     Dosage: AFTER DINNER
  9. TRAZODONE HYDROCHLORIDE [Concomitant]
     Active Substance: TRAZODONE HYDROCHLORIDE
     Dosage: AFTER DINNER
  10. FLUVOXAMINE MALEATE [Concomitant]
     Active Substance: FLUVOXAMINE MALEATE
     Dosage: AFTER BREAKFAST AND DINNER
  11. SILODOSIN [Concomitant]
     Active Substance: SILODOSIN
     Dosage: AFTER BREAKFAST AND DINNER
  12. CEFAZOLIN SODIUM [Concomitant]
     Active Substance: CEFAZOLIN SODIUM
  13. SODIUM CHLORIDE [Concomitant]
     Active Substance: SODIUM CHLORIDE
  14. BUPRENORPHINE HYDROCHLORIDE [Concomitant]
     Active Substance: BUPRENORPHINE HYDROCHLORIDE
     Route: 065

REACTIONS (4)
  - Ischaemic stroke [Fatal]
  - Disseminated intravascular coagulation [Fatal]
  - Multiple organ dysfunction syndrome [Fatal]
  - Hypertension [Unknown]
